FAERS Safety Report 16618656 (Version 1)
Quarter: 2019Q3

REPORT INFORMATION
  Report Type: Spontaneous
  Country: PL (occurrence: PL)
  Receive Date: 20190723
  Receipt Date: 20190723
  Transmission Date: 20191004
  Serious: Yes (Other)
  Sender: FDA-Public Use
  Company Number: PL-ALLERGAN-1929653US

PATIENT
  Age: 35 Year
  Sex: Female

DRUGS (1)
  1. LEVONORGESTREL - BP [Suspect]
     Active Substance: LEVONORGESTREL
     Indication: CONTRACEPTION
     Dosage: 52 MG AT AN INITIAL RELEASE RATE OF 20 MICROGRAMS PER 24 HOURS
     Route: 015
     Dates: start: 20151208

REACTIONS (3)
  - Ectopic pregnancy [Not Recovered/Not Resolved]
  - Drug ineffective [Unknown]
  - Exposure during pregnancy [Unknown]

NARRATIVE: CASE EVENT DATE: 20190702
